FAERS Safety Report 23950174 (Version 3)
Quarter: 2024Q3

REPORT INFORMATION
  Report Type: Spontaneous
  Country: US (occurrence: None)
  Receive Date: 20240607
  Receipt Date: 20240708
  Transmission Date: 20241016
  Serious: No
  Sender: ASTRAZENECA
  Company Number: 2024A129312

PATIENT
  Sex: Female

DRUGS (1)
  1. BREZTRI [Suspect]
     Active Substance: BUDESONIDE\FORMOTEROL\GLYCOPYRROLATE
     Indication: Chronic obstructive pulmonary disease
     Route: 055

REACTIONS (6)
  - Fatigue [Unknown]
  - Cough [Unknown]
  - Wrong technique in device usage process [Unknown]
  - Off label use [Unknown]
  - Device use issue [Unknown]
  - Inability to afford medication [Unknown]
